FAERS Safety Report 19958059 (Version 2)
Quarter: 2021Q4

REPORT INFORMATION
  Report Type: Report from Study
  Country: US (occurrence: US)
  Receive Date: 20211015
  Receipt Date: 20211022
  Transmission Date: 20220303
  Serious: Yes (Life-Threatening, Other)
  Sender: FDA-Public Use
  Company Number: NVSC2021US232141

PATIENT
  Age: 23 Year
  Sex: Male
  Weight: 59.6 kg

DRUGS (56)
  1. INVESTIGATIONAL PRODUCT [Suspect]
     Active Substance: INVESTIGATIONAL PRODUCT
     Indication: Sickle cell disease
     Dosage: 100 %
     Route: 042
     Dates: start: 20210927
  2. BENADRYL [Suspect]
     Active Substance: DIPHENHYDRAMINE HYDROCHLORIDE
     Indication: Prophylaxis of nausea and vomiting
     Dosage: 200 MG, (IN 50 ML) CONT
     Route: 041
     Dates: start: 20210926, end: 20211009
  3. ATIVAN [Suspect]
     Active Substance: LORAZEPAM
     Indication: Prophylaxis of nausea and vomiting
     Dosage: 8 MG, (IN 50 ML) CONT
     Route: 041
     Dates: start: 20210926, end: 20211009
  4. LIDOCAINE [Concomitant]
     Active Substance: LIDOCAINE
     Indication: Central venous catheterisation
     Dosage: UNK
     Route: 065
     Dates: start: 20210920, end: 20210920
  5. LIDOCAINE [Concomitant]
     Active Substance: LIDOCAINE
     Indication: Aspiration bone marrow
  6. PSEUDOEPHEDRINE. [Concomitant]
     Active Substance: PSEUDOEPHEDRINE HYDROCHLORIDE
     Indication: Priapism
     Dosage: UNK
     Route: 065
     Dates: start: 20190927
  7. FENTANYL [Concomitant]
     Active Substance: FENTANYL
     Indication: Central venous catheterisation
     Dosage: UNK
     Route: 065
     Dates: start: 20210920, end: 20210920
  8. FENTANYL [Concomitant]
     Active Substance: FENTANYL
     Indication: Aspiration bone marrow
  9. LACTATED RINGERS SOLUTION [Concomitant]
     Active Substance: CALCIUM CHLORIDE\POTASSIUM CHLORIDE\SODIUM CHLORIDE\SODIUM LACTATE
     Indication: Central venous catheterisation
     Dosage: UNK
     Route: 065
     Dates: start: 20210920, end: 20210920
  10. LACTATED RINGERS SOLUTION [Concomitant]
     Active Substance: CALCIUM CHLORIDE\POTASSIUM CHLORIDE\SODIUM CHLORIDE\SODIUM LACTATE
     Indication: Aspiration bone marrow
  11. PROPOFOL [Concomitant]
     Active Substance: PROPOFOL
     Indication: Central venous catheterisation
     Dosage: UNK
     Route: 065
     Dates: start: 20210920, end: 20210920
  12. PROPOFOL [Concomitant]
     Active Substance: PROPOFOL
     Indication: Aspiration bone marrow
  13. HYDROMORPHONE [Concomitant]
     Active Substance: HYDROMORPHONE
     Indication: Central venous catheterisation
     Dosage: UNK
     Route: 065
     Dates: start: 20210920, end: 20210920
  14. HYDROMORPHONE [Concomitant]
     Active Substance: HYDROMORPHONE
     Indication: Pain
     Dosage: UNK
     Route: 065
     Dates: start: 20210920, end: 20210921
  15. HYDROMORPHONE [Concomitant]
     Active Substance: HYDROMORPHONE
     Indication: Aspiration bone marrow
     Dosage: UNK
     Route: 065
     Dates: start: 20210921, end: 20210921
  16. HYDROMORPHONE [Concomitant]
     Active Substance: HYDROMORPHONE
     Indication: Stomatitis
     Dosage: UNK
     Route: 065
     Dates: start: 20210922, end: 20210922
  17. HYDROMORPHONE [Concomitant]
     Active Substance: HYDROMORPHONE
     Indication: Pain
     Dosage: UNK
     Route: 065
     Dates: start: 20210922, end: 20210924
  18. HYDROMORPHONE [Concomitant]
     Active Substance: HYDROMORPHONE
     Dosage: UNK
     Route: 065
     Dates: start: 20210924, end: 20210925
  19. HYDROMORPHONE [Concomitant]
     Active Substance: HYDROMORPHONE
     Dosage: UNK
     Route: 065
     Dates: start: 20211002, end: 20211004
  20. IBUPROFEN [Concomitant]
     Active Substance: IBUPROFEN
     Indication: Pain
     Dosage: UNK
     Route: 065
     Dates: start: 20200115
  21. IBUPROFEN [Concomitant]
     Active Substance: IBUPROFEN
     Indication: Pain
     Dosage: UNK
     Route: 065
     Dates: start: 20210920, end: 20210920
  22. NICOTINE [Concomitant]
     Active Substance: NICOTINE
     Indication: Product used for unknown indication
     Dosage: UNK
     Route: 065
     Dates: start: 20210921, end: 20210921
  23. CHOLECALCIFEROL [Concomitant]
     Active Substance: CHOLECALCIFEROL
     Indication: Vitamin D deficiency
     Dosage: UNK
     Route: 065
     Dates: start: 20190927
  24. MAGNESIUM [Concomitant]
     Active Substance: MAGNESIUM
     Indication: Metabolic disorder
     Dosage: UNK
     Route: 065
     Dates: start: 20210922, end: 20210928
  25. MAGNESIUM [Concomitant]
     Active Substance: MAGNESIUM
     Indication: Protein total decreased
     Dosage: UNK
     Route: 065
     Dates: start: 20210928, end: 20211003
  26. MORPHINE [Concomitant]
     Active Substance: MORPHINE
     Indication: Pain
     Dosage: UNK
     Route: 065
     Dates: start: 20210925, end: 20210926
  27. MORPHINE [Concomitant]
     Active Substance: MORPHINE
     Indication: Stomatitis
     Dosage: UNK
     Route: 065
     Dates: start: 20210926, end: 20210926
  28. MORPHINE [Concomitant]
     Active Substance: MORPHINE
     Dosage: UNK
     Route: 065
     Dates: start: 20210928, end: 20210928
  29. MORPHINE [Concomitant]
     Active Substance: MORPHINE
     Dosage: UNK
     Route: 065
     Dates: start: 20210930, end: 20210930
  30. MORPHINE [Concomitant]
     Active Substance: MORPHINE
     Dosage: UNK
     Route: 065
     Dates: start: 20210928, end: 20211002
  31. MORPHINE [Concomitant]
     Active Substance: MORPHINE
     Dosage: UNK
     Route: 065
     Dates: start: 20211004, end: 20211009
  32. OXYCODONE [Concomitant]
     Active Substance: OXYCODONE
     Indication: Pain
     Dosage: UNK
     Route: 065
     Dates: start: 20210926, end: 20210928
  33. OXYCODONE [Concomitant]
     Active Substance: OXYCODONE
     Indication: Stomatitis
     Dosage: UNK
     Route: 065
     Dates: start: 20210927, end: 20210927
  34. OXYCODONE [Concomitant]
     Active Substance: OXYCODONE
     Dosage: UNK
     Route: 065
     Dates: start: 20210928, end: 20210928
  35. OXYCODONE [Concomitant]
     Active Substance: OXYCODONE
     Dosage: UNK
     Route: 065
     Dates: start: 20210928, end: 20211001
  36. OXYCODONE [Concomitant]
     Active Substance: OXYCODONE
     Dosage: UNK
     Route: 065
     Dates: start: 20211001, end: 20211002
  37. OXYCODONE [Concomitant]
     Active Substance: OXYCODONE
     Dosage: UNK
     Route: 065
     Dates: start: 20211004, end: 20211004
  38. ALBUTEROL [Concomitant]
     Active Substance: ALBUTEROL
     Indication: Wheezing
     Dosage: UNK
     Route: 065
     Dates: start: 20190830
  39. ACETAMINOPHEN [Concomitant]
     Active Substance: ACETAMINOPHEN
     Indication: Premedication
     Dosage: UNK
     Route: 065
     Dates: start: 20210927, end: 20210927
  40. ACETAMINOPHEN [Concomitant]
     Active Substance: ACETAMINOPHEN
     Indication: Premedication
     Dosage: UNK
     Route: 065
     Dates: start: 20210928, end: 20210928
  41. FLUCONAZOLE [Concomitant]
     Active Substance: FLUCONAZOLE
     Indication: Sickle cell disease
     Dosage: UNK
     Route: 065
     Dates: start: 20210928, end: 20210928
  42. PROMETHAZINE [Concomitant]
     Active Substance: PROMETHAZINE HYDROCHLORIDE
     Indication: Migraine
     Dosage: UNK
     Route: 065
     Dates: start: 20200115
  43. ONDANSETRON [Concomitant]
     Active Substance: ONDANSETRON
     Indication: Central venous catheterisation
     Dosage: UNK
     Route: 065
     Dates: start: 20210920, end: 20210920
  44. ONDANSETRON [Concomitant]
     Active Substance: ONDANSETRON
     Indication: Anaesthesia procedure
  45. TYLENOL [Concomitant]
     Active Substance: ACETAMINOPHEN
     Indication: Pyrexia
     Dosage: UNK
     Route: 065
  46. LORAZEPAM [Concomitant]
     Active Substance: LORAZEPAM
     Indication: Anxiety
     Dosage: UNK
     Route: 065
     Dates: start: 20210922, end: 20210925
  47. LORAZEPAM [Concomitant]
     Active Substance: LORAZEPAM
     Indication: Nausea
     Dosage: UNK
     Route: 065
     Dates: start: 20210927, end: 20210927
  48. LORAZEPAM [Concomitant]
     Active Substance: LORAZEPAM
     Indication: Gastrointestinal tube insertion
     Dosage: UNK
     Route: 065
     Dates: start: 20210925, end: 20210926
  49. LORAZEPAM [Concomitant]
     Active Substance: LORAZEPAM
     Dosage: UNK
     Route: 065
     Dates: start: 20210926, end: 20210930
  50. LORAZEPAM [Concomitant]
     Active Substance: LORAZEPAM
     Dosage: UNK
     Route: 065
     Dates: start: 20210928, end: 20210928
  51. LORAZEPAM [Concomitant]
     Active Substance: LORAZEPAM
     Dosage: UNK
     Route: 065
     Dates: start: 20211003, end: 20211003
  52. DIPHENHYDRAMINE [Concomitant]
     Active Substance: DIPHENHYDRAMINE
     Indication: Anxiety
     Dosage: UNK
     Route: 065
     Dates: start: 20210922, end: 20210925
  53. DIPHENHYDRAMINE [Concomitant]
     Active Substance: DIPHENHYDRAMINE
     Indication: Nausea
     Dosage: UNK
     Route: 065
     Dates: start: 20210925, end: 20210926
  54. DIPHENHYDRAMINE [Concomitant]
     Active Substance: DIPHENHYDRAMINE
     Indication: Premedication
     Dosage: UNK
     Route: 065
     Dates: start: 20210927, end: 20210927
  55. DIPHENHYDRAMINE [Concomitant]
     Active Substance: DIPHENHYDRAMINE
     Indication: Migraine
     Dosage: UNK
     Route: 065
     Dates: start: 20200115
  56. DIPHENHYDRAMINE [Concomitant]
     Active Substance: DIPHENHYDRAMINE
     Indication: Premedication
     Dosage: UNK
     Route: 065
     Dates: start: 20210928, end: 20210928

REACTIONS (1)
  - Accidental overdose [Recovered/Resolved]

NARRATIVE: CASE EVENT DATE: 20211009
